FAERS Safety Report 21025401 (Version 1)
Quarter: 2022Q2

REPORT INFORMATION
  Report Type: Report from Study
  Country: FR (occurrence: FR)
  Receive Date: 20220630
  Receipt Date: 20220630
  Transmission Date: 20220721
  Serious: Yes (Hospitalization, Other)
  Sender: FDA-Public Use
  Company Number: FR-TAKEDA-2022TUS042960

PATIENT
  Age: 69 Year
  Sex: Female

DRUGS (10)
  1. TEDUGLUTIDE [Suspect]
     Active Substance: TEDUGLUTIDE
     Indication: Short-bowel syndrome
     Dosage: 2.4 MILLIGRAM, QD
     Route: 042
     Dates: start: 20190129, end: 20201103
  2. TEDUGLUTIDE [Suspect]
     Active Substance: TEDUGLUTIDE
     Indication: Short-bowel syndrome
     Dosage: 2.4 MILLIGRAM, QD
     Route: 042
     Dates: start: 20190129, end: 20201103
  3. TEDUGLUTIDE [Suspect]
     Active Substance: TEDUGLUTIDE
     Indication: Short-bowel syndrome
     Dosage: 2.4 MILLIGRAM, QD
     Route: 042
     Dates: start: 20190129, end: 20201103
  4. TEDUGLUTIDE [Suspect]
     Active Substance: TEDUGLUTIDE
     Indication: Short-bowel syndrome
     Dosage: 2.4 MILLIGRAM, QD
     Route: 042
     Dates: start: 20190129, end: 20201103
  5. PIPERACILLIN SODIUM\TAZOBACTAM SODIUM [Concomitant]
     Active Substance: PIPERACILLIN SODIUM\TAZOBACTAM SODIUM
     Indication: Vascular device infection
     Dosage: 1 DOSAGE FORM, QD
     Route: 042
     Dates: start: 20210628, end: 20210707
  6. PIPERACILLIN SODIUM\TAZOBACTAM SODIUM [Concomitant]
     Active Substance: PIPERACILLIN SODIUM\TAZOBACTAM SODIUM
     Indication: Cystitis
  7. DENOSUMAB [Concomitant]
     Active Substance: DENOSUMAB
     Indication: Osteoporosis
     Dosage: 60 MILLIGRAM, QD
     Route: 058
     Dates: start: 20210909, end: 20210909
  8. VANCOMYCIN [Concomitant]
     Active Substance: VANCOMYCIN
     Indication: Vascular device infection
     Dosage: 1 DOSAGE FORM, QD
     Route: 042
     Dates: start: 20210707, end: 20210804
  9. DAPTOMYCIN [Concomitant]
     Active Substance: DAPTOMYCIN
     Indication: Cystitis
     Dosage: 10 MILLIGRAM/KILOGRAM
     Route: 042
     Dates: start: 20210628, end: 20210707
  10. DAPTOMYCIN [Concomitant]
     Active Substance: DAPTOMYCIN
     Indication: Vascular device infection

REACTIONS (1)
  - Duodenitis [Not Recovered/Not Resolved]

NARRATIVE: CASE EVENT DATE: 20220109
